FAERS Safety Report 17930761 (Version 1)
Quarter: 2020Q2

REPORT INFORMATION
  Report Type: Spontaneous
  Country: FI (occurrence: FI)
  Receive Date: 20200623
  Receipt Date: 20200623
  Transmission Date: 20200714
  Serious: Yes (Other)
  Sender: FDA-Public Use
  Company Number: FI-BAYER-2020-058191

PATIENT
  Sex: Female
  Weight: 70 kg

DRUGS (1)
  1. YASMINELLE [Suspect]
     Active Substance: DROSPIRENONE
     Dosage: UNK
     Route: 048
     Dates: start: 201810

REACTIONS (3)
  - Drug ineffective [None]
  - Abortion spontaneous [None]
  - Pregnancy on oral contraceptive [Recovered/Resolved]
